FAERS Safety Report 5189687-6 (Version None)
Quarter: 2006Q4

REPORT INFORMATION
  Report Type: 
  Country: None (occurrence: None)
  Receive Date: 20061215
  Receipt Date: 20061208
  Transmission Date: 20070319
  Serious: Yes (Other)
  Sender: FDA-Public Use
  Company Number: 233132

PATIENT
  Age: 62 Year
  Sex: Male
  Weight: 112 kg

DRUGS (3)
  1. AVASTIN [Suspect]
     Indication: COLORECTAL CANCER METASTATIC
     Dates: start: 20040301, end: 20061115
  2. LOVENOX [Concomitant]
  3. COUMADIN [Concomitant]

REACTIONS (3)
  - HAEMORRHAGE [None]
  - INTERNATIONAL NORMALISED RATIO DECREASED [None]
  - SUBCUTANEOUS ABSCESS [None]
